FAERS Safety Report 11894563 (Version 1)
Quarter: 2016Q1

REPORT INFORMATION
  Report Type: Spontaneous
  Country: US (occurrence: None)
  Receive Date: 20160106
  Receipt Date: 20160106
  Transmission Date: 20160526
  Serious: Yes (Other)
  Sender: FDA-Public Use
  Company Number: None

PATIENT
  Age: 54 Year
  Sex: Female
  Weight: 62.6 kg

DRUGS (12)
  1. DEPAKOTE [Concomitant]
     Active Substance: DIVALPROEX SODIUM
  2. SINUS MEDICATION [Concomitant]
     Active Substance: UNSPECIFIED INGREDIENT
  3. TRICOR [Concomitant]
     Active Substance: FENOFIBRATE
  4. LYRICA [Concomitant]
     Active Substance: PREGABALIN
  5. MELOXICAM. [Concomitant]
     Active Substance: MELOXICAM
  6. KLONOPIN [Concomitant]
     Active Substance: CLONAZEPAM
  7. RISPERIDONE. [Concomitant]
     Active Substance: RISPERIDONE
  8. GABAPENTIN. [Suspect]
     Active Substance: GABAPENTIN
  9. METHOCARBON [Concomitant]
  10. LIPITOR [Concomitant]
     Active Substance: ATORVASTATIN CALCIUM
  11. PREVACID [Concomitant]
     Active Substance: LANSOPRAZOLE
  12. VITAMINS [Concomitant]
     Active Substance: VITAMINS

REACTIONS (18)
  - Asthenia [None]
  - Insomnia [None]
  - Therapy cessation [None]
  - Nausea [None]
  - Pain [None]
  - Fatigue [None]
  - Arthropathy [None]
  - Back pain [None]
  - Pallor [None]
  - Headache [None]
  - Vomiting [None]
  - Refusal of treatment by patient [None]
  - Hyperhidrosis [None]
  - Malaise [None]
  - Condition aggravated [None]
  - Seizure [None]
  - Spinal disorder [None]
  - Gastrointestinal disorder [None]
